FAERS Safety Report 6268054-8 (Version None)
Quarter: 2009Q3

REPORT INFORMATION
  Report Type: 
  Country: None (occurrence: None)
  Receive Date: 20090713
  Receipt Date: 20090701
  Transmission Date: 20100115
  Serious: Yes (Other)
  Sender: FDA-Public Use
  Company Number: GB-1170138

PATIENT
  Age: 69 Year
  Sex: Female

DRUGS (1)
  1. FLUORESCITE [Suspect]
     Indication: ANGIOGRAM RETINA
     Dosage: 4 ML INTRAVENOUS BOLUS
     Route: 040
     Dates: start: 20090506, end: 20090506

REACTIONS (1)
  - ORAL PRURITUS [None]
